FAERS Safety Report 11762528 (Version 1)
Quarter: 2015Q4

REPORT INFORMATION
  Report Type: Spontaneous
  Country: US (occurrence: US)
  Receive Date: 20151120
  Receipt Date: 20151120
  Transmission Date: 20160304
  Serious: No
  Sender: FDA-Public Use
  Company Number: US-ELI_LILLY_AND_COMPANY-US201302004085

PATIENT
  Age: 79 Year
  Sex: Female

DRUGS (3)
  1. NITRO                              /00003201/ [Concomitant]
     Indication: ANGINA PECTORIS
  2. FORTEO [Suspect]
     Active Substance: TERIPARATIDE
     Indication: OSTEOPOROSIS
     Dosage: 20 UG, QD
     Dates: start: 20130108
  3. FORTEO [Suspect]
     Active Substance: TERIPARATIDE
     Dosage: 20 UG, QD
     Dates: start: 20130202

REACTIONS (5)
  - Arthralgia [Unknown]
  - Peripheral swelling [Unknown]
  - Angina pectoris [Unknown]
  - Sciatica [Unknown]
  - Tendonitis [Unknown]

NARRATIVE: CASE EVENT DATE: 20130208
